FAERS Safety Report 18018191 (Version 2)
Quarter: 2020Q3

REPORT INFORMATION
  Report Type: Spontaneous
  Country: US (occurrence: US)
  Receive Date: 20200714
  Receipt Date: 20200723
  Transmission Date: 20201103
  Serious: No
  Sender: FDA-Public Use
  Company Number: US-BRISTOL-MYERS SQUIBB COMPANY-BMS-2020-055272

PATIENT
  Age: 82 Year
  Sex: Male

DRUGS (1)
  1. NIVOLUMAB [Suspect]
     Active Substance: NIVOLUMAB
     Indication: MALIGNANT MELANOMA STAGE III
     Dosage: 240 MILLIGRAM, Q2WK
     Route: 042
     Dates: start: 201806

REACTIONS (3)
  - Rash papular [Unknown]
  - Nail discolouration [Recovered/Resolved]
  - Rash erythematous [Unknown]

NARRATIVE: CASE EVENT DATE: 201811
